FAERS Safety Report 8156088-8 (Version None)
Quarter: 2012Q1

REPORT INFORMATION
  Report Type: 
  Country: None (occurrence: None)
  Receive Date: 20120103
  Receipt Date: 20110823
  Transmission Date: 20120608
  Serious: No
  Sender: FDA-Public Use
  Company Number: AE-2011-000838

PATIENT
  Sex: Female
  Weight: 61.23 kg

DRUGS (7)
  1. VITAMIN D2 (ERGOCALCIFEROL) [Concomitant]
  2. PEGASYS [Concomitant]
  3. ASPIRIN [Concomitant]
  4. INCIVEK [Suspect]
     Dosage: 2250 MG (750 MG, 3 IN 1 D), ORAL
     Route: 048
     Dates: start: 20110801
  5. OMEPRAZOLE [Concomitant]
  6. IRON (IRON) [Concomitant]
  7. COPEGUS [Concomitant]

REACTIONS (1)
  - VOMITING [None]
